FAERS Safety Report 14132022 (Version 3)
Quarter: 2018Q1

REPORT INFORMATION
  Report Type: Report from Study
  Country: None (occurrence: AU)
  Receive Date: 20171027
  Receipt Date: 20180219
  Transmission Date: 20180508
  Serious: Yes (Hospitalization, Other)
  Sender: FDA-Public Use
  Company Number: AU-ABBVIE-17P-008-2137632-00

PATIENT
  Age: 63 Year
  Sex: Male

DRUGS (2)
  1. NILUTAMIDE. [Concomitant]
     Active Substance: NILUTAMIDE
     Indication: PRODUCT USED FOR UNKNOWN INDICATION
     Dates: start: 20170823
  2. LUCRIN DEPOT [Suspect]
     Active Substance: LEUPROLIDE ACETATE
     Indication: PROSTATE CANCER
     Route: 050
     Dates: start: 20170823

REACTIONS (11)
  - Urinary tract discomfort [Unknown]
  - Haemorrhage urinary tract [Unknown]
  - Urinary incontinence [Unknown]
  - Prostate cancer [Unknown]
  - Arthralgia [Unknown]
  - Urinary tract obstruction [Unknown]
  - Bladder discomfort [Recovering/Resolving]
  - Back pain [Unknown]
  - Urinary retention [Unknown]
  - Urinary retention [Recovering/Resolving]
  - Haemorrhage urinary tract [Unknown]

NARRATIVE: CASE EVENT DATE: 2017
